FAERS Safety Report 6292782-1 (Version None)
Quarter: 2009Q3

REPORT INFORMATION
  Report Type: 
  Country: None (occurrence: None)
  Receive Date: 20090728
  Receipt Date: 20090720
  Transmission Date: 20100115
  Serious: Yes (Disabling)
  Sender: FDA-Public Use
  Company Number: ADR8102009

PATIENT
  Age: 78 Year
  Sex: Male

DRUGS (5)
  1. ALENDRONIC ACID (MFR: UNKNOWN) [Suspect]
     Indication: OSTEOPOROSIS
     Dosage: 70 MG WEEKLY ORAL USE
     Route: 048
     Dates: start: 20070417, end: 20080623
  2. BONIVA [Suspect]
     Indication: OSTEOPOROSIS
     Dosage: 150 MG  MONTLY ORAL USE
     Route: 048
     Dates: start: 20060623, end: 20081224
  3. NEOSTIOMINE 15MG [Concomitant]
  4. PREDNISOLONE 15MG [Concomitant]
  5. PYRIDOSTIGMINE 6MG [Concomitant]

REACTIONS (3)
  - ANXIETY [None]
  - DEPRESSION [None]
  - FATIGUE [None]
